FAERS Safety Report 10062604 (Version 1)
Quarter: 2014Q1

REPORT INFORMATION
  Report Type: Spontaneous
  Country: US (occurrence: None)
  Receive Date: 20140313
  Receipt Date: 20140313
  Transmission Date: 20141002
  Serious: No
  Sender: FDA-Public Use
  Company Number: 1000052501

PATIENT
  Age: 76 Year
  Sex: Male

DRUGS (8)
  1. DALIRESP [Suspect]
     Indication: CHRONIC OBSTRUCTIVE PULMONARY DISEASE
     Route: 048
     Dates: start: 201311, end: 201311
  2. SPIRIVA (TIOTROPIUM BROMIDE) (TIOTROPIUM BROMIDE) [Concomitant]
  3. SYMBICORT (BUDESONIDE W/FORMOTEROL FUMARATE) (BUDESONIDE W/FOMOTEROL FUMARATE) [Concomitant]
  4. SYMLINPEN (PRAMLINTIDE ACETATE) (PRAMILINTIDE ACETATE) [Concomitant]
  5. METFORMIN (METFORMIN) (METFORMIN) [Concomitant]
  6. XARETO (RIVAROXABAN) (RIVAROXABAN) [Concomitant]
  7. SYNTHROID (LEVOTHYROXINE SODIUM) (LEVOTHYROXINE SODIUM) [Concomitant]
  8. FUROSEMIDE (FUROSEMIDE) (FUROSEMIDE) [Concomitant]

REACTIONS (2)
  - Muscle spasms [None]
  - Diarrhoea [None]
